FAERS Safety Report 18474080 (Version 1)
Quarter: 2020Q4

REPORT INFORMATION
  Report Type: Spontaneous
  Country: FR (occurrence: FR)
  Receive Date: 20201106
  Receipt Date: 20201106
  Transmission Date: 20210114
  Serious: Yes (Death)
  Sender: FDA-Public Use
  Company Number: FR-PFIZER INC-2019545692

PATIENT
  Age: 77 Year
  Sex: Male
  Weight: 71 kg

DRUGS (11)
  1. VYNDAQEL [Suspect]
     Active Substance: TAFAMIDIS MEGLUMINE
     Indication: CARDIAC AMYLOIDOSIS
     Dosage: 20 MG, 1X/DAY IN THE MORNING
     Route: 048
     Dates: start: 20190619
  2. SERESTA [Concomitant]
     Active Substance: OXAZEPAM
     Dosage: 10 MG, 1X/DAY IN THE MORNING
  3. TAMSULOSIN [Concomitant]
     Active Substance: TAMSULOSIN
     Dosage: 0.4 MG, 1X/DAY IN THE MORNING
  4. INNOHEP [Concomitant]
     Active Substance: TINZAPARIN SODIUM
     Dosage: 1400 IU, 1X/DAY IN THE MORNING
  5. SERESTA [Concomitant]
     Active Substance: OXAZEPAM
     Dosage: 50 MG, 1X/DAY IN THE EVENING
  6. RANITIDINE. [Concomitant]
     Active Substance: RANITIDINE
     Dosage: UNK
  7. VALACICLOVIR [Concomitant]
     Active Substance: VALACYCLOVIR HYDROCHLORIDE
     Dosage: UNK
  8. TAHOR [Concomitant]
     Active Substance: ATORVASTATIN CALCIUM
     Dosage: 40 MG, 1X/DAY IN THE EVENING
  9. ALLOPURINOL. [Concomitant]
     Active Substance: ALLOPURINOL
     Dosage: 100 MG, 1X/DAY IN THE MORNING
  10. LANSOPRAZOLE. [Concomitant]
     Active Substance: LANSOPRAZOLE
     Dosage: 30 MG, 1X/DAY IN THE MORNING
  11. CORDARONE [Concomitant]
     Active Substance: AMIODARONE HYDROCHLORIDE
     Dosage: 200 MG, 1X/DAY IN THE MORNING

REACTIONS (3)
  - Pruritus [Not Recovered/Not Resolved]
  - Cell death [Fatal]
  - Action tremor [Not Recovered/Not Resolved]

NARRATIVE: CASE EVENT DATE: 20190620
